FAERS Safety Report 19719929 (Version 1)
Quarter: 2021Q3

REPORT INFORMATION
  Report Type: Report from Study
  Country: CA (occurrence: CA)
  Receive Date: 20210818
  Receipt Date: 20210818
  Transmission Date: 20211014
  Serious: Yes (Hospitalization)
  Sender: FDA-Public Use
  Company Number: CA-EMD SERONO-E2B_90084587

PATIENT
  Age: 53 Year
  Sex: Male

DRUGS (13)
  1. ACETAMINOPHEN. [Concomitant]
     Active Substance: ACETAMINOPHEN
     Indication: PAIN IN EXTREMITY
     Route: 048
     Dates: start: 2021
  2. CANNABIS SATIVA OIL [Concomitant]
     Active Substance: CANNABIS SATIVA SUBSP. INDICA TOP
     Dosage: 12.5 MG, QD, PRN
     Route: 048
     Dates: start: 202106
  3. HYDROMORPHONE [Suspect]
     Active Substance: HYDROMORPHONE
     Route: 048
     Dates: start: 20210730
  4. HYDROMORPHONE [Suspect]
     Active Substance: HYDROMORPHONE
     Route: 048
     Dates: start: 20210805
  5. BEDROBINOL [Concomitant]
     Indication: PAIN IN EXTREMITY
     Dosage: 12.5 MG, QD, PRN
     Route: 048
     Dates: start: 202106
  6. BINTRAFUSP ALFA (M7824) [Suspect]
     Active Substance: BINTRAFUSP ALFA
     Indication: TRANSITIONAL CELL CARCINOMA
     Route: 042
     Dates: start: 20210729
  7. CANNABIS SATIVA OIL [Concomitant]
     Active Substance: CANNABIS SATIVA SUBSP. INDICA TOP
     Indication: PAIN IN EXTREMITY
     Dosage: QD, PRN
     Route: 061
     Dates: start: 202106
  8. HYDROMORPHONE CR [Concomitant]
     Indication: PAIN IN EXTREMITY
     Route: 048
     Dates: start: 20210715
  9. LACTULOSE. [Concomitant]
     Active Substance: LACTULOSE
     Indication: CONSTIPATION
     Dosage: 667 MG/ML, BID
     Route: 048
     Dates: start: 2021
  10. HYDROMORPHONE [Suspect]
     Active Substance: HYDROMORPHONE
     Route: 048
     Dates: start: 20210805
  11. SENOKOT [Concomitant]
     Active Substance: SENNOSIDES
     Indication: CONSTIPATION
     Route: 048
     Dates: start: 202107
  12. HYDROMORPHONE [Suspect]
     Active Substance: HYDROMORPHONE
     Indication: PAIN IN EXTREMITY
     Route: 048
     Dates: start: 202106
  13. CBD OIL [Concomitant]
     Active Substance: CANNABIDIOL\HERBALS
     Indication: PAIN IN EXTREMITY
     Route: 048
     Dates: start: 202106

REACTIONS (2)
  - Delirium [Not Recovered/Not Resolved]
  - Pyrexia [Recovering/Resolving]

NARRATIVE: CASE EVENT DATE: 20210731
